FAERS Safety Report 18212801 (Version 1)
Quarter: 2020Q3

REPORT INFORMATION
  Report Type: Spontaneous
  Country: GB (occurrence: UG)
  Receive Date: 20200831
  Receipt Date: 20200831
  Transmission Date: 20201103
  Serious: Yes (Other)
  Sender: FDA-Public Use
  Company Number: GB-009507513-2008GBR012191

PATIENT
  Sex: Female

DRUGS (2)
  1. IMPLANON NXT [Suspect]
     Active Substance: ETONOGESTREL
     Indication: CONTRACEPTION
     Dosage: 1 IMPLANT
     Route: 059
  2. EFAVIRENZ (+) LAMIVUDINE (+) TENOFOVIR DISOPROXIL FUMARATE [Interacting]
     Active Substance: EFAVIRENZ\LAMIVUDINE\TENOFOVIR DISOPROXIL FUMARATE
     Indication: ANTIRETROVIRAL THERAPY
     Dosage: UNK

REACTIONS (3)
  - Unintended pregnancy [Not Recovered/Not Resolved]
  - Drug interaction [Unknown]
  - Pregnancy with implant contraceptive [Not Recovered/Not Resolved]
